FAERS Safety Report 9931485 (Version 1)
Quarter: 2014Q1

REPORT INFORMATION
  Report Type: Report from Study
  Country: US (occurrence: US)
  Receive Date: 20140228
  Receipt Date: 20140228
  Transmission Date: 20141002
  Serious: Yes (Hospitalization, Other)
  Sender: FDA-Public Use
  Company Number: US-ROCHE-1333673

PATIENT
  Age: 77 Year
  Sex: Male
  Weight: 76.27 kg

DRUGS (19)
  1. LUCENTIS [Suspect]
     Indication: AGE-RELATED MACULAR DEGENERATION
     Route: 050
     Dates: start: 20110214
  2. LUCENTIS [Suspect]
     Indication: AGE-RELATED MACULAR DEGENERATION
  3. AVASTIN [Suspect]
     Indication: PRODUCT USED FOR UNKNOWN INDICATION
     Route: 050
     Dates: start: 20080318, end: 20110110
  4. ASPIRIN [Concomitant]
  5. BENADRYL ALLERGY (UNITED STATES) [Concomitant]
     Route: 048
  6. CLONIDINE HYDROCHLORIDE [Concomitant]
  7. LISINOPRIL [Concomitant]
  8. LUTEIN [Concomitant]
  9. SOMA (UNITED STATES) [Concomitant]
  10. SYSTANE [Concomitant]
     Route: 047
  11. VICODIN [Concomitant]
  12. VITAMIN B COMPLEX [Concomitant]
  13. ZADITOR [Concomitant]
     Route: 047
  14. ZADITOR [Concomitant]
     Route: 047
     Dates: start: 20080825, end: 20101101
  15. ZYRTEC [Concomitant]
  16. OCUFLOX [Concomitant]
     Dosage: X2 WEEKS
     Route: 047
     Dates: start: 20091116, end: 20100201
  17. OCUFLOX [Concomitant]
     Dosage: X 4 DAYS
     Route: 047
     Dates: start: 20101206, end: 20111003
  18. ZYMAR [Concomitant]
     Dosage: X 4 DAYS
     Route: 047
     Dates: start: 20091019, end: 20091221
  19. ZYMAR [Concomitant]
     Dosage: X 4 DAYS
     Route: 047
     Dates: start: 20080318, end: 20080818

REACTIONS (14)
  - Anaemia [Unknown]
  - Macular fibrosis [Unknown]
  - Macular oedema [Recovered/Resolved]
  - Blepharitis [Unknown]
  - Visual acuity reduced [Unknown]
  - Dry eye [Unknown]
  - Toxicity to various agents [Unknown]
  - Intraocular lens implant [Unknown]
  - Cataract nuclear [Unknown]
  - Metamorphopsia [Unknown]
  - Hypertension [Unknown]
  - Arthritis [Unknown]
  - Gastrooesophageal reflux disease [Unknown]
  - Retinal degeneration [Unknown]
